FAERS Safety Report 6610470-6 (Version None)
Quarter: 2010Q1

REPORT INFORMATION
  Report Type: 
  Country: None (occurrence: None)
  Receive Date: 20100302
  Receipt Date: 20100218
  Transmission Date: 20100710
  Serious: Yes (Other)
  Sender: FDA-Public Use
  Company Number: GB-ELI_LILLY_AND_COMPANY-GB200911001249

PATIENT
  Sex: Female
  Weight: 60.2 kg

DRUGS (19)
  1. CYMBALTA [Suspect]
     Indication: GENERALISED ANXIETY DISORDER
     Dosage: 60 MG, DAILY (1/D)
     Route: 048
     Dates: start: 20090505, end: 20091214
  2. DIAZEPAM [Concomitant]
     Dosage: 10 MG, AS NEEDED
     Route: 065
     Dates: start: 20090429
  3. DIAZEPAM [Concomitant]
     Dosage: 5 MG, DAILY (1/D) (AT NIGHT)
     Route: 065
     Dates: start: 20100203
  4. SENNA [Concomitant]
     Dosage: 7.5 MG, 2/D
     Route: 065
     Dates: start: 20090429
  5. FUROSEMIDE [Concomitant]
     Dosage: 40 MG, DAILY (1/D)
     Route: 065
     Dates: start: 20090429
  6. PREMARIN [Concomitant]
     Dosage: 625 UG, DAILY (1/D)
     Route: 065
     Dates: start: 20090429
  7. ASPIRIN [Concomitant]
     Dosage: 75 MG, DAILY (1/D)
     Route: 065
     Dates: start: 20090429
  8. OMEPRAZOLE [Concomitant]
     Dosage: 20 MG, DAILY (1/D)
     Route: 065
     Dates: start: 20090429
  9. PAROXETINE HCL [Concomitant]
     Dosage: 30 MG, DAILY (1/D)
     Route: 065
     Dates: start: 20090429
  10. FERROUS SULFATE TAB [Concomitant]
     Dosage: 200 MG, 3/D
     Route: 065
     Dates: start: 20090429
  11. GLICLAZIDE [Concomitant]
     Dosage: 30 MG, DAILY (1/D)
     Route: 065
     Dates: start: 20090429
  12. TRAMADOL HCL [Concomitant]
     Dosage: 50 MG, 4/D
     Route: 065
     Dates: start: 20090429
  13. AMITRIPTYLINE HCL [Concomitant]
     Dosage: 10 MG, 3/D
     Route: 065
     Dates: start: 20090429
  14. SIMVASTATIN [Concomitant]
     Dosage: 40 MG, DAILY (1/D)
     Route: 065
     Dates: start: 20090429
  15. ALBUTEROL [Concomitant]
     Dosage: 100 UG, 2/D
     Route: 055
     Dates: start: 20090429
  16. MORPHINE SULFATE [Concomitant]
     Indication: PAIN
     Dosage: 2.5 ML, 4/D
     Route: 048
     Dates: start: 20090427
  17. MORPHINE SULFATE [Concomitant]
     Dosage: 5 ML, 4/D
     Route: 048
     Dates: start: 20090427
  18. PARACETAMOL [Concomitant]
     Dosage: 500 MG, DAILY (1/D)
     Route: 065
     Dates: start: 20090427
  19. PARACETAMOL [Concomitant]
     Dosage: 500 MG, 2/D
     Route: 065
     Dates: start: 20090427

REACTIONS (11)
  - AGGRESSION [None]
  - ANGER [None]
  - ANXIETY DISORDER [None]
  - CONFUSIONAL STATE [None]
  - CONVERSION DISORDER [None]
  - INCORRECT DOSE ADMINISTERED [None]
  - INSOMNIA [None]
  - MEMORY IMPAIRMENT [None]
  - PANIC DISORDER [None]
  - SOMNOLENCE [None]
  - TREMOR [None]
